FAERS Safety Report 9655495 (Version 2)
Quarter: 2013Q4

REPORT INFORMATION
  Report Type: Spontaneous
  Country: US (occurrence: US)
  Receive Date: 20131029
  Receipt Date: 20131029
  Transmission Date: 20140711
  Serious: No
  Sender: FDA-Public Use
  Company Number: US-PURDUE-USA-2011-0079328

PATIENT
  Sex: Male

DRUGS (3)
  1. OXYCONTIN (NDA 22-272) [Suspect]
     Indication: PAIN
     Dosage: 160 MG, TID
     Route: 048
  2. OXYCONTIN (NDA 22-272) [Suspect]
     Dosage: 80 MG, TID
     Route: 048
  3. LOMOTIL [Concomitant]
     Indication: DIARRHOEA
     Dosage: UNK UNK, PRN

REACTIONS (4)
  - Medication residue present [Not Recovered/Not Resolved]
  - Product physical issue [Not Recovered/Not Resolved]
  - Inadequate analgesia [Recovered/Resolved]
  - Drug ineffective [Unknown]
